FAERS Safety Report 6411577-9 (Version None)
Quarter: 2009Q4

REPORT INFORMATION
  Report Type: 
  Country: None (occurrence: None)
  Receive Date: 20091020
  Receipt Date: 20091006
  Transmission Date: 20100525
  Serious: Yes (Other)
  Sender: FDA-Public Use
  Company Number: 1-20331041

PATIENT
  Sex: Female

DRUGS (2)
  1. SODIUM PHENYLBUTYRATE [Suspect]
     Indication: NEOPLASM
     Dosage: 400 MG/M^2/D, WEEKLY, INTRAVENOUS
     Route: 042
  2. 5-AZACYTIDINE (MANUFACTURER NOT REPORTED) [Suspect]
     Indication: NEOPLASM
     Dosage: 12.5 MG/M^2/D, DAILY, SUBCUTANEOUS
     Route: 058

REACTIONS (5)
  - DEHYDRATION [None]
  - PERFORMANCE STATUS DECREASED [None]
  - RENAL FAILURE ACUTE [None]
  - URINARY TRACT INFECTION FUNGAL [None]
  - URINARY TRACT OBSTRUCTION [None]
